FAERS Safety Report 15626092 (Version 1)
Quarter: 2018Q4

REPORT INFORMATION
  Report Type: Other
  Country: US (occurrence: US)
  Receive Date: 20181116
  Receipt Date: 20181116
  Transmission Date: 20190205
  Serious: Yes (Other)
  Sender: FDA-Public Use
  Company Number: US-ACTELION-A-CH2018-181642

PATIENT
  Sex: Female
  Weight: 2.7 kg

DRUGS (3)
  1. SILDENAFIL. [Concomitant]
     Active Substance: SILDENAFIL
  2. EPOPROSTENOL SODIUM. [Suspect]
     Active Substance: EPOPROSTENOL SODIUM
     Indication: PULMONARY HYPERTENSION
     Route: 042
  3. MILRINONE [Concomitant]
     Active Substance: MILRINONE

REACTIONS (2)
  - Post procedural haemorrhage [Unknown]
  - Haemothorax [Unknown]
